FAERS Safety Report 24196306 (Version 1)
Quarter: 2024Q3

REPORT INFORMATION
  Report Type: Spontaneous
  Country: CA (occurrence: CA)
  Receive Date: 20240809
  Receipt Date: 20240809
  Transmission Date: 20241017
  Serious: Yes (Other)
  Sender: TEVA
  Company Number: CA-TEVA-VS-3227779

PATIENT
  Sex: Female
  Weight: 58 kg

DRUGS (1)
  1. PANTOPRAZOLE [Suspect]
     Active Substance: PANTOPRAZOLE
     Indication: Gastrooesophageal reflux disease
     Route: 048

REACTIONS (3)
  - Hiccups [Recovered/Resolved]
  - Dyspepsia [Recovered/Resolved]
  - Product substitution issue [Recovered/Resolved]
